FAERS Safety Report 26007205 (Version 1)
Quarter: 2025Q4

REPORT INFORMATION
  Report Type: Spontaneous
  Country: US (occurrence: US)
  Receive Date: 20251106
  Receipt Date: 20251106
  Transmission Date: 20260117
  Serious: No
  Sender: TEVA
  Company Number: US-TEVA-VS-3386219

PATIENT
  Sex: Female

DRUGS (1)
  1. FLUTICASONE PROPIONATE AND SALMETEROL [Suspect]
     Active Substance: FLUTICASONE PROPIONATE\SALMETEROL XINAFOATE
     Indication: Product used for unknown indication
     Dosage: 232-14MCG/DOSE-MCG/DOSE
     Route: 065

REACTIONS (1)
  - Oropharyngeal pain [Unknown]
